FAERS Safety Report 24130189 (Version 1)
Quarter: 2024Q3

REPORT INFORMATION
  Report Type: Spontaneous
  Country: CA (occurrence: CA)
  Receive Date: 20240724
  Receipt Date: 20240724
  Transmission Date: 20241016
  Serious: Yes (Other)
  Sender: CELLTRION
  Company Number: CA-PFIZER INC-PV202400092566

PATIENT

DRUGS (2)
  1. INFLECTRA [Suspect]
     Active Substance: INFLIXIMAB-DYYB
     Dosage: 5 MG/KG, EVERY 6 WEEKS
  2. INFLECTRA [Suspect]
     Active Substance: INFLIXIMAB-DYYB
     Dosage: UNK
     Dates: start: 20240715

REACTIONS (7)
  - Gingival disorder [Unknown]
  - Rash pruritic [Recovering/Resolving]
  - Paraesthesia [Recovering/Resolving]
  - Arthralgia [Unknown]
  - Muscular weakness [Unknown]
  - Visual impairment [Unknown]
  - Off label use [Unknown]
